FAERS Safety Report 12469456 (Version 1)
Quarter: 2016Q2

REPORT INFORMATION
  Report Type: Spontaneous
  Country: US (occurrence: US)
  Receive Date: 20160615
  Receipt Date: 20160615
  Transmission Date: 20160815
  Serious: No
  Sender: FDA-Public Use
  Company Number: US-ACTELION-A-US2016-137193

PATIENT
  Age: 72 Year
  Sex: Female

DRUGS (9)
  1. METFORMIN [Concomitant]
     Active Substance: METFORMIN HYDROCHLORIDE
  2. MVI [Concomitant]
     Active Substance: VITAMINS
  3. PREDNISOLONE. [Concomitant]
     Active Substance: PREDNISOLONE
  4. DIGOXIN. [Concomitant]
     Active Substance: DIGOXIN
  5. ATROVENT [Concomitant]
     Active Substance: IPRATROPIUM BROMIDE
  6. NORTRIPTYLINE [Concomitant]
     Active Substance: NORTRIPTYLINE
  7. NEXIUM [Concomitant]
     Active Substance: ESOMEPRAZOLE MAGNESIUM
  8. OPSUMIT [Suspect]
     Active Substance: MACITENTAN
     Indication: PULMONARY ARTERIAL HYPERTENSION
     Dosage: 10 MG, QD
     Route: 048
  9. WARFARIN [Concomitant]
     Active Substance: WARFARIN

REACTIONS (2)
  - Arthralgia [Not Recovered/Not Resolved]
  - Joint swelling [Not Recovered/Not Resolved]

NARRATIVE: CASE EVENT DATE: 201605
